FAERS Safety Report 18594468 (Version 1)
Quarter: 2020Q4

REPORT INFORMATION
  Report Type: Spontaneous
  Country: JP (occurrence: JP)
  Receive Date: 20201209
  Receipt Date: 20201209
  Transmission Date: 20210114
  Serious: Yes (Other)
  Sender: FDA-Public Use
  Company Number: JP-AUROBINDO-AUR-APL-2020-060580

PATIENT
  Sex: Female

DRUGS (1)
  1. FOLOTYN [Suspect]
     Active Substance: PRALATREXATE
     Indication: ANGIOIMMUNOBLASTIC T-CELL LYMPHOMA RECURRENT
     Dosage: UNK
     Route: 042

REACTIONS (1)
  - Malignant neoplasm progression [Unknown]
